FAERS Safety Report 6387685-8 (Version None)
Quarter: 2009Q3

REPORT INFORMATION
  Report Type: 
  Country: None (occurrence: None)
  Receive Date: 20090930
  Receipt Date: 20090918
  Transmission Date: 20100115
  Serious: Yes (Hospitalization)
  Sender: FDA-Public Use
  Company Number: 8051104

PATIENT
  Sex: Female

DRUGS (1)
  1. CIMZIA [Suspect]
     Indication: CROHN'S DISEASE
     Dosage: 200 MG 1/2W SC
     Route: 058
     Dates: start: 20090106

REACTIONS (2)
  - ABDOMINAL INFECTION [None]
  - SMALL INTESTINAL RESECTION [None]
